FAERS Safety Report 22075708 (Version 1)
Quarter: 2023Q1

REPORT INFORMATION
  Report Type: Spontaneous
  Country: FR (occurrence: FR)
  Receive Date: 20230308
  Receipt Date: 20230308
  Transmission Date: 20230418
  Serious: Yes (Hospitalization)
  Sender: FDA-Public Use
  Company Number: None

PATIENT
  Age: 20 Year
  Sex: Female
  Weight: 62 kg

DRUGS (5)
  1. VENLAFAXINE [Suspect]
     Active Substance: VENLAFAXINE HYDROCHLORIDE
     Indication: Intentional overdose
     Dosage: 75 MG/J X6
     Route: 048
     Dates: start: 20230208, end: 20230208
  2. OXAZEPAM [Suspect]
     Active Substance: OXAZEPAM
     Indication: Intentional overdose
     Dosage: 175 MG/J X6
     Route: 048
     Dates: start: 20230208, end: 20230208
  3. LEVOMEPROMAZINE [Suspect]
     Active Substance: LEVOMEPROMAZINE
     Indication: Intentional overdose
     Dosage: 45 MG/J X6
     Route: 048
     Dates: start: 20230208, end: 20230208
  4. TRAMADOL [Suspect]
     Active Substance: TRAMADOL
     Indication: Intentional overdose
     Dosage: 200 MG/J X6
     Route: 048
     Dates: start: 20230208, end: 20230208
  5. QUETIAPINE [Suspect]
     Active Substance: QUETIAPINE
     Indication: Intentional overdose
     Dosage: 100 MG/J X6
     Route: 048
     Dates: start: 20230208, end: 20230208

REACTIONS (3)
  - Somnolence [Recovered/Resolved]
  - Myoclonus [Recovered/Resolved]
  - Poisoning deliberate [Recovered/Resolved]

NARRATIVE: CASE EVENT DATE: 20230208
